FAERS Safety Report 7669368-7 (Version None)
Quarter: 2011Q3

REPORT INFORMATION
  Report Type: 
  Country: None (occurrence: None)
  Receive Date: 20110808
  Receipt Date: 20110728
  Transmission Date: 20111222
  Serious: Yes (Hospitalization)
  Sender: FDA-Public Use
  Company Number: US-ROCHE-787283

PATIENT
  Sex: Male
  Weight: 74.1 kg

DRUGS (1)
  1. CAPECITABINE [Suspect]
     Dosage: DOSE: 500 MG 4 TABLETS.
     Route: 048
     Dates: start: 20110603

REACTIONS (7)
  - MUCOSAL INFLAMMATION [None]
  - PYREXIA [None]
  - OEDEMA MOUTH [None]
  - DEHYDRATION [None]
  - VOMITING [None]
  - EPISTAXIS [None]
  - DIARRHOEA [None]
